FAERS Safety Report 10907378 (Version 1)
Quarter: 2015Q1

REPORT INFORMATION
  Report Type: Spontaneous
  Country: FI (occurrence: FI)
  Receive Date: 20150312
  Receipt Date: 20150312
  Transmission Date: 20150721
  Serious: Yes (Other)
  Sender: FDA-Public Use
  Company Number: FI-PFIZER INC-2015083804

PATIENT
  Age: 62 Year
  Sex: Male

DRUGS (1)
  1. REVATIO [Suspect]
     Active Substance: SILDENAFIL CITRATE
     Dosage: UNK

REACTIONS (5)
  - Hypotension [Unknown]
  - Dependence on enabling machine or device [Recovered/Resolved]
  - Off label use [Unknown]
  - Cardiac disorder [Unknown]
  - Pulmonary arterial pressure increased [Recovered/Resolved]
